FAERS Safety Report 11299493 (Version 1)
Quarter: 2015Q3

REPORT INFORMATION
  Report Type: Spontaneous
  Country: US (occurrence: US)
  Receive Date: 20150722
  Receipt Date: 20150722
  Transmission Date: 20151125
  Serious: No
  Sender: FDA-Public Use
  Company Number: US-ELI_LILLY_AND_COMPANY-US201212005502

PATIENT
  Sex: Female

DRUGS (1)
  1. HUMATROPE [Suspect]
     Active Substance: SOMATROPIN
     Indication: GROWTH HORMONE DEFICIENCY
     Dosage: 0.5 MG, EACH EVENING (RIGHT BEFORE SHE GOES TO BED)
     Route: 058

REACTIONS (4)
  - Device issue [Unknown]
  - Fatigue [Unknown]
  - Headache [Unknown]
  - Underdose [Unknown]
